FAERS Safety Report 7821846-3 (Version None)
Quarter: 2011Q4

REPORT INFORMATION
  Report Type: 
  Country: None (occurrence: None)
  Receive Date: 20111018
  Receipt Date: 20101011
  Transmission Date: 20120403
  Serious: No
  Sender: FDA-Public Use
  Company Number: US-ASTRAZENECA-2010SE47951

PATIENT
  Age: 855 Month
  Sex: Male
  Weight: 95.3 kg

DRUGS (4)
  1. SYMBICORT [Suspect]
     Dosage: 160/4.5 TWO PUFFS
     Route: 055
     Dates: start: 20100801
  2. ALBUTEROL [Concomitant]
  3. SYMBICORT [Suspect]
     Dosage: 160/4.5 TWO PUFFS
     Route: 055
     Dates: start: 20100701
  4. SYMBICORT [Suspect]
     Indication: ASTHMA
     Dosage: 160/4.5
     Route: 055
     Dates: start: 20100401

REACTIONS (4)
  - PULMONARY CONGESTION [None]
  - DYSPNOEA [None]
  - INCREASED UPPER AIRWAY SECRETION [None]
  - COUGH [None]
